FAERS Safety Report 15534907 (Version 1)
Quarter: 2018Q4

REPORT INFORMATION
  Report Type: Spontaneous
  Country: US (occurrence: US)
  Receive Date: 20181022
  Receipt Date: 20181022
  Transmission Date: 20190205
  Serious: No
  Sender: FDA-Public Use
  Company Number: US-APOTEX-2018AP020630

PATIENT
  Age: 54 Year
  Sex: Female

DRUGS (2)
  1. MOXIFIOXACIN OPHTHALMIC SOLUTION USP [Suspect]
     Active Substance: MOXIFLOXACIN
     Indication: INJURY CORNEAL
     Dosage: 1 GTT, TID (1 DROP ON LEFT EYE, THREE TIMES A DAY)
     Route: 047
     Dates: start: 20180904, end: 20180907
  2. LIBRIUM [Concomitant]
     Active Substance: CHLORDIAZEPOXIDE HYDROCHLORIDE
     Indication: ANXIETY
     Dosage: 1 DF, Q.4H. (ONE CAPSULE EVERY 4 HOURS AS NEEDED)
     Route: 048

REACTIONS (7)
  - Malaise [Not Recovered/Not Resolved]
  - Nasopharyngitis [Not Recovered/Not Resolved]
  - Drug hypersensitivity [Not Recovered/Not Resolved]
  - Instillation site pain [Not Recovered/Not Resolved]
  - Dyspnoea [Not Recovered/Not Resolved]
  - Sneezing [Not Recovered/Not Resolved]
  - Eye irritation [Not Recovered/Not Resolved]

NARRATIVE: CASE EVENT DATE: 20180904
